FAERS Safety Report 10924531 (Version 2)
Quarter: 2015Q2

REPORT INFORMATION
  Report Type: Spontaneous
  Country: US (occurrence: US)
  Receive Date: 20150318
  Receipt Date: 20150524
  Transmission Date: 20150821
  Serious: No
  Sender: FDA-Public Use
  Company Number: US-JNJFOC-20141015316

PATIENT
  Age: 61 Year
  Sex: Female
  Weight: 48.99 kg

DRUGS (2)
  1. NIZORAL A-D [Suspect]
     Active Substance: KETOCONAZOLE
     Indication: DANDRUFF
     Dosage: APPLIED LIBERALLY TO SCALP, 3-4 DAYS
     Route: 061
     Dates: start: 20140831, end: 20141012
  2. NIZORAL A-D [Suspect]
     Active Substance: KETOCONAZOLE
     Route: 061

REACTIONS (1)
  - Drug ineffective [Unknown]
